FAERS Safety Report 10056579 (Version 1)
Quarter: 2014Q2

REPORT INFORMATION
  Report Type: Spontaneous
  Country: IT (occurrence: IT)
  Receive Date: 20140403
  Receipt Date: 20140403
  Transmission Date: 20141212
  Serious: Yes (Other)
  Sender: FDA-Public Use
  Company Number: IT-WATSON-2014-05939

PATIENT
  Age: 34 Year
  Sex: Female

DRUGS (6)
  1. HYDROXYCHLOROQUINE SULFATE (WATSON LABORATORIES) [Suspect]
     Indication: SYSTEMIC LUPUS ERYTHEMATOSUS
     Dosage: 200 MG, BID
     Route: 065
  2. METHYLPREDNISOLONE [Concomitant]
     Indication: SYSTEMIC LUPUS ERYTHEMATOSUS
     Dosage: 8 MG, DAILY
     Route: 065
  3. METHYLPREDNISOLONE [Concomitant]
     Dosage: 60 MG, DAILY
     Route: 042
  4. METHYLPREDNISOLONE [Concomitant]
     Dosage: 25 MG, DAILY
     Route: 065
  5. PREDNISONE [Concomitant]
     Indication: SYSTEMIC LUPUS ERYTHEMATOSUS
     Dosage: 37.5 MG, DAILY
     Route: 065
  6. ASPIRIN [Concomitant]
     Indication: PRODUCT USED FOR UNKNOWN INDICATION
     Dosage: 100 MG, DAILY
     Route: 065

REACTIONS (2)
  - Myopathy [Recovered/Resolved]
  - Maternal exposure during pregnancy [Recovered/Resolved]
